FAERS Safety Report 6927332 (Version 4)
Quarter: 2016Q4

REPORT INFORMATION
  Report Type: Spontaneous
  Country: US (occurrence: US)
  Receive Date: 20090304
  Receipt Date: 20161003
  Transmission Date: 20170207
  Serious: Yes (Hospitalization)
  Sender: FDA-Public Use
  Company Number: US-ASTRAZENECA-2009UW05417

PATIENT
  Age: 540 Month
  Sex: Male
  Weight: 165.6 kg

DRUGS (23)
  1. SEROQUEL [Suspect]
     Active Substance: QUETIAPINE FUMARATE
     Indication: POST-TRAUMATIC STRESS DISORDER
     Route: 048
     Dates: start: 2004
  2. SEROQUEL [Suspect]
     Active Substance: QUETIAPINE FUMARATE
     Indication: ILL-DEFINED DISORDER
     Route: 048
     Dates: start: 2004
  3. SEROQUEL [Suspect]
     Active Substance: QUETIAPINE FUMARATE
     Indication: POST-TRAUMATIC STRESS DISORDER
     Dosage: 900.0MG UNKNOWN
     Route: 048
  4. SEROQUEL [Suspect]
     Active Substance: QUETIAPINE FUMARATE
     Indication: POST-TRAUMATIC STRESS DISORDER
     Dosage: GENERIC UNKNOWN
     Route: 048
  5. LATUDA [Suspect]
     Active Substance: LURASIDONE HYDROCHLORIDE
     Indication: PARANOIA
     Route: 048
     Dates: start: 20110314, end: 20110323
  6. PRAVASTATIN. [Concomitant]
     Active Substance: PRAVASTATIN
  7. UNSPECIFIED PAIN MEDICATION [Concomitant]
     Active Substance: UNSPECIFIED INGREDIENT
     Indication: PAIN
  8. SEROQUEL [Suspect]
     Active Substance: QUETIAPINE FUMARATE
     Indication: ILL-DEFINED DISORDER
     Dosage: 100.0MG UNKNOWN
     Route: 048
     Dates: end: 20110323
  9. LATUDA [Suspect]
     Active Substance: LURASIDONE HYDROCHLORIDE
     Indication: ANXIETY
     Route: 048
     Dates: start: 20110324
  10. SEROQUEL [Suspect]
     Active Substance: QUETIAPINE FUMARATE
     Indication: DEPRESSION
     Dosage: GENERIC UNKNOWN
     Route: 048
  11. SEROQUEL [Suspect]
     Active Substance: QUETIAPINE FUMARATE
     Indication: ILL-DEFINED DISORDER
     Dosage: GENERIC UNKNOWN
     Route: 048
  12. LORAZEPAN [Concomitant]
     Active Substance: LORAZEPAM
  13. SEROQUEL [Suspect]
     Active Substance: QUETIAPINE FUMARATE
     Indication: DEPRESSION
     Route: 048
     Dates: start: 2004
  14. SEROQUEL [Suspect]
     Active Substance: QUETIAPINE FUMARATE
     Indication: POST-TRAUMATIC STRESS DISORDER
     Dosage: 200.0MG UNKNOWN
     Route: 048
  15. SEROQUEL [Suspect]
     Active Substance: QUETIAPINE FUMARATE
     Indication: POST-TRAUMATIC STRESS DISORDER
     Dosage: 100.0MG UNKNOWN
     Route: 048
     Dates: end: 20110323
  16. SEROQUEL [Suspect]
     Active Substance: QUETIAPINE FUMARATE
     Indication: DEPRESSION
     Dosage: 900.0MG UNKNOWN
     Route: 048
  17. LATUDA [Suspect]
     Active Substance: LURASIDONE HYDROCHLORIDE
     Indication: PARANOIA
     Route: 048
     Dates: start: 20110324
  18. SEROQUEL [Suspect]
     Active Substance: QUETIAPINE FUMARATE
     Indication: ILL-DEFINED DISORDER
     Dosage: 900.0MG UNKNOWN
     Route: 048
  19. SEROQUEL [Suspect]
     Active Substance: QUETIAPINE FUMARATE
     Indication: DEPRESSION
     Dosage: 200.0MG UNKNOWN
     Route: 048
  20. SEROQUEL [Suspect]
     Active Substance: QUETIAPINE FUMARATE
     Indication: ILL-DEFINED DISORDER
     Dosage: 200.0MG UNKNOWN
     Route: 048
  21. SEROQUEL [Suspect]
     Active Substance: QUETIAPINE FUMARATE
     Indication: DEPRESSION
     Dosage: 100.0MG UNKNOWN
     Route: 048
     Dates: end: 20110323
  22. LATUDA [Suspect]
     Active Substance: LURASIDONE HYDROCHLORIDE
     Indication: ANXIETY
     Route: 048
     Dates: start: 20110314, end: 20110323
  23. ADDEROL [Concomitant]

REACTIONS (26)
  - Musculoskeletal stiffness [Not Recovered/Not Resolved]
  - Night sweats [Not Recovered/Not Resolved]
  - Renal disorder [Unknown]
  - Blood testosterone decreased [Unknown]
  - Peripheral swelling [Unknown]
  - Weight increased [Not Recovered/Not Resolved]
  - Vision blurred [Unknown]
  - Hallucination, auditory [Unknown]
  - Pain [Unknown]
  - Tremor [Unknown]
  - Fluid retention [Unknown]
  - Nasal congestion [Not Recovered/Not Resolved]
  - Throat tightness [Recovering/Resolving]
  - Hypogonadism [Unknown]
  - Localised oedema [Unknown]
  - Vomiting [Recovering/Resolving]
  - Arthralgia [Unknown]
  - Muscle spasms [Unknown]
  - Temperature intolerance [Unknown]
  - Stress [Unknown]
  - Musculoskeletal stiffness [Unknown]
  - Sinus disorder [Recovering/Resolving]
  - Nausea [Recovering/Resolving]
  - Dystonia [Recovering/Resolving]
  - Dyspnoea [Recovering/Resolving]
  - Muscular weakness [Unknown]

NARRATIVE: CASE EVENT DATE: 201103
